FAERS Safety Report 4768363-5 (Version None)
Quarter: 2005Q3

REPORT INFORMATION
  Report Type: 
  Country: None (occurrence: None)
  Receive Date: 20050906
  Receipt Date: 20050601
  Transmission Date: 20060218
  Serious: No
  Sender: FDA-Public Use
  Company Number: 2004-BP-13270BP

PATIENT
  Age: 69 Year
  Sex: Female

DRUGS (12)
  1. SPIRIVA [Suspect]
     Indication: CHRONIC OBSTRUCTIVE PULMONARY DISEASE
     Dosage: 18 MCG (18 MCG,QD), IH
     Route: 055
     Dates: start: 20040701
  2. ALBUTEROL [Concomitant]
  3. MAXAIR [Concomitant]
  4. THEOPHYLLINE [Concomitant]
  5. POTASSIUM (POTASSIUM) [Concomitant]
  6. LASIX [Concomitant]
  7. OXYGEN (OXYGEN) [Concomitant]
  8. NEBULIZER [Concomitant]
  9. MIACALCIN [Concomitant]
  10. SINGULAIR [Concomitant]
  11. NAPROSYN [Concomitant]
  12. EYE DROPS (TETRYZOLINE HYDROCHLORIDE) [Concomitant]

REACTIONS (1)
  - DYSPNOEA [None]
